FAERS Safety Report 21964901 (Version 2)
Quarter: 2023Q1

REPORT INFORMATION
  Report Type: Report from Study
  Country: US (occurrence: US)
  Receive Date: 20230207
  Receipt Date: 20230215
  Transmission Date: 20230417
  Serious: Yes (Hospitalization, Other)
  Sender: FDA-Public Use
  Company Number: US-INCYTE CORPORATION-2023IN001164

PATIENT

DRUGS (1)
  1. JAKAFI [Suspect]
     Active Substance: RUXOLITINIB
     Indication: Haematological neoplasm
     Dosage: 10 MILLIGRAM, QD
     Route: 048

REACTIONS (3)
  - Femur fracture [Unknown]
  - Off label use [Unknown]
  - Product availability issue [Unknown]
